FAERS Safety Report 17162386 (Version 1)
Quarter: 2019Q4

REPORT INFORMATION
  Report Type: Spontaneous
  Country: JP (occurrence: JP)
  Receive Date: 20191217
  Receipt Date: 20191217
  Transmission Date: 20200122
  Serious: Yes (Hospitalization)
  Sender: FDA-Public Use
  Company Number: JP-TEVA-2019-JP-1153186

PATIENT
  Age: 70 Year
  Sex: Male

DRUGS (1)
  1. WARFARIN [Suspect]
     Active Substance: WARFARIN
     Indication: ATRIAL FIBRILLATION
     Dosage: MEDICATION ERROR
     Route: 065

REACTIONS (4)
  - Rhabdomyolysis [Recovered/Resolved]
  - Haematoma muscle [Recovered/Resolved]
  - Acute kidney injury [Recovered/Resolved]
  - Incorrect dose administered [Unknown]
